FAERS Safety Report 9394976 (Version 1)
Quarter: 2013Q3

REPORT INFORMATION
  Report Type: Spontaneous
  Country: FR (occurrence: FR)
  Receive Date: 20130711
  Receipt Date: 20130711
  Transmission Date: 20140515
  Serious: Yes (Disabling, Other)
  Sender: FDA-Public Use
  Company Number: FR-ABBOTT-13X-056-1117264-00

PATIENT
  Sex: 0

DRUGS (1)
  1. DEPAKINE [Suspect]
     Indication: MATERNAL EXPOSURE TIMING UNSPECIFIED
     Route: 064

REACTIONS (6)
  - Metabolic disorder [Unknown]
  - Learning disability [Recovered/Resolved with Sequelae]
  - Speech disorder developmental [Unknown]
  - Psychomotor skills impaired [Unknown]
  - Dysmyelination [Unknown]
  - Foetal exposure during pregnancy [Unknown]
